FAERS Safety Report 16828077 (Version 1)
Quarter: 2019Q3

REPORT INFORMATION
  Report Type: Spontaneous
  Country: JP (occurrence: JP)
  Receive Date: 20190919
  Receipt Date: 20190919
  Transmission Date: 20191005
  Serious: Yes (Death)
  Sender: FDA-Public Use
  Company Number: JP-OTSUKA-2019_032519

PATIENT
  Age: 77 Year
  Sex: Male

DRUGS (2)
  1. LUNESTA [Concomitant]
     Active Substance: ESZOPICLONE
     Indication: PRODUCT USED FOR UNKNOWN INDICATION
     Dosage: UNK
     Route: 048
  2. ABILIFY MAINTENA [Suspect]
     Active Substance: ARIPIPRAZOLE
     Indication: FRONTOTEMPORAL DEMENTIA
     Dosage: UNK
     Route: 030

REACTIONS (2)
  - Product use in unapproved indication [Unknown]
  - Pneumonia aspiration [Fatal]
